FAERS Safety Report 13717128 (Version 2)
Quarter: 2018Q1

REPORT INFORMATION
  Report Type: Report from Study
  Country: US (occurrence: BR)
  Receive Date: 20170705
  Receipt Date: 20180119
  Transmission Date: 20180508
  Serious: Yes (Death, Hospitalization, Other)
  Sender: FDA-Public Use
  Company Number: US-SUNOVION-2017SUN002906

PATIENT
  Sex: Male
  Weight: 70 kg

DRUGS (1)
  1. INDACATEROL AND GLYCOPYRROLATE [Suspect]
     Active Substance: GLYCOPYRROLATE\INDACATEROL MALEATE
     Indication: EMPHYSEMA
     Dosage: UNK, QD
     Route: 055

REACTIONS (8)
  - Eating disorder [Unknown]
  - Pulmonary pain [Unknown]
  - Drug ineffective [Unknown]
  - Asthenia [Not Recovered/Not Resolved]
  - Pulmonary embolism [Unknown]
  - Fatigue [Unknown]
  - Emphysema [Fatal]
  - Gait inability [Unknown]
